FAERS Safety Report 4489437-2 (Version None)
Quarter: 2004Q4

REPORT INFORMATION
  Report Type: 
  Country: None (occurrence: None)
  Receive Date: 20041101
  Receipt Date: 20041022
  Transmission Date: 20050328
  Serious: Yes (Other)
  Sender: FDA-Public Use
  Company Number: 200414036FR

PATIENT
  Age: 58 Year
  Sex: Female

DRUGS (2)
  1. ARAVA [Suspect]
     Indication: ANKYLOSING SPONDYLITIS
     Route: 048
     Dates: start: 20040501, end: 20040701
  2. CORTANCYL [Suspect]
     Indication: ANKYLOSING SPONDYLITIS
     Route: 048
     Dates: start: 20040101, end: 20040801

REACTIONS (3)
  - DEPRESSION [None]
  - HEADACHE [None]
  - TINNITUS [None]
